FAERS Safety Report 14590842 (Version 2)
Quarter: 2018Q3

REPORT INFORMATION
  Report Type: Spontaneous
  Country: US (occurrence: US)
  Receive Date: 20180302
  Receipt Date: 20180831
  Transmission Date: 20181010
  Serious: Yes (Other)
  Sender: FDA-Public Use
  Company Number: US-NOVOPROD-574325

PATIENT
  Age: 58 Year
  Sex: Female

DRUGS (4)
  1. VICTOZA [Suspect]
     Active Substance: LIRAGLUTIDE
     Indication: PRODUCT USED FOR UNKNOWN INDICATION
     Dosage: UNK
     Route: 058
  2. HUMIRA [Suspect]
     Active Substance: ADALIMUMAB
     Dosage: 80 MG, SINGLE
     Route: 058
     Dates: start: 20171019, end: 20171019
  3. HUMIRA [Suspect]
     Active Substance: ADALIMUMAB
     Indication: CROHN^S DISEASE
     Dosage: 160 MG, SINGLE
     Route: 058
     Dates: start: 20171005, end: 20171005
  4. HUMIRA [Suspect]
     Active Substance: ADALIMUMAB
     Dosage: 40 MG, EVERY OTHER WEEK
     Route: 058
     Dates: start: 20171102

REACTIONS (14)
  - Rectal haemorrhage [Unknown]
  - Contusion [Recovered/Resolved]
  - Defaecation urgency [Unknown]
  - Arthralgia [Unknown]
  - Pain in extremity [Unknown]
  - Decreased appetite [Unknown]
  - Vomiting [Unknown]
  - Malaise [Unknown]
  - Faeces hard [Not Recovered/Not Resolved]
  - Constipation [Not Recovered/Not Resolved]
  - Arthritis [Not Recovered/Not Resolved]
  - Abdominal pain [Unknown]
  - Nausea [Unknown]
  - Injection site bruising [Recovered/Resolved]

NARRATIVE: CASE EVENT DATE: 2017
